FAERS Safety Report 10228388 (Version 1)
Quarter: 2014Q2

REPORT INFORMATION
  Report Type: Spontaneous
  Country: US (occurrence: None)
  Receive Date: 20140505
  Receipt Date: 20140505
  Transmission Date: 20141212
  Serious: No
  Sender: FDA-Public Use
  Company Number: US-015116

PATIENT
  Age: 51 Year
  Sex: Male
  Weight: 95.26 kg

DRUGS (1)
  1. PICO-SALAX [Suspect]
     Indication: BOWEL PREPARATION
     Dosage: (FIRST PACKET: 23 MAR 2014 AT 5:00 PM; SECOND PACKET: 24 MAR 2014 AT 9:00 AM ORAL)
     Route: 048
     Dates: start: 20140323, end: 20140324

REACTIONS (1)
  - Drug ineffective [None]
